FAERS Safety Report 17175706 (Version 1)
Quarter: 2019Q4

REPORT INFORMATION
  Report Type: Report from Study
  Country: CA (occurrence: CA)
  Receive Date: 20191219
  Receipt Date: 20191219
  Transmission Date: 20200122
  Serious: Yes (Hospitalization)
  Sender: FDA-Public Use
  Company Number: CA-HLSUS-2019-CA-000347

PATIENT
  Age: 55 Year
  Sex: Male

DRUGS (7)
  1. SEROQUEL [Concomitant]
     Active Substance: QUETIAPINE FUMARATE
     Dosage: 800MG PER DAY
  2. CLOZARIL [Suspect]
     Active Substance: CLOZAPINE
     Indication: PRODUCT USED FOR UNKNOWN INDICATION
     Dosage: 50MG AT NOON AND SUPPER AND 700MG AT BEDTIME
     Route: 048
     Dates: start: 20120130, end: 20191108
  3. ATROPINE. [Concomitant]
     Active Substance: ATROPINE
  4. EPIVAL [Concomitant]
     Active Substance: DIVALPROEX SODIUM
     Dosage: 750MG TWICE A DAY
  5. TAZO-CIPRO [Concomitant]
  6. CIPRALEX [Concomitant]
     Active Substance: ESCITALOPRAM OXALATE
     Dosage: 10MG PER DAY
  7. CEFTRIAXONE-AZITHROMYCIN [Concomitant]

REACTIONS (7)
  - Insomnia [Unknown]
  - Salivary hypersecretion [Unknown]
  - Diarrhoea [Unknown]
  - Altered state of consciousness [Recovered/Resolved]
  - Pneumonia [Unknown]
  - Drug interaction [Unknown]
  - Blood disorder [Unknown]

NARRATIVE: CASE EVENT DATE: 20190909
